FAERS Safety Report 11888227 (Version 1)
Quarter: 2016Q1

REPORT INFORMATION
  Report Type: Report from Study
  Country: BR (occurrence: BR)
  Receive Date: 20160105
  Receipt Date: 20160105
  Transmission Date: 20160526
  Serious: Yes (Other)
  Sender: FDA-Public Use
  Company Number: PHHY2015BR171384

PATIENT
  Sex: Female
  Weight: 51 kg

DRUGS (7)
  1. NEOTIAPIM [Suspect]
     Active Substance: QUETIAPINE
     Indication: AGITATION
     Dosage: 50 MG, TID (IN THE MORNING, IN THE AFTERNOON AND AT NIGHT)
     Route: 048
  2. NEOTIAPIM [Suspect]
     Active Substance: QUETIAPINE
     Dosage: 100 MG, TID IN THE MORNING, IN THE AFTERNOON AND AT NIGHT)
     Route: 048
  3. NEOTIAPIM [Suspect]
     Active Substance: QUETIAPINE
     Indication: AGGRESSION
     Dosage: 75 MG, TID  IN THE MORNING, IN THE AFTERNOON AND AT NIGHT)
     Route: 048
  4. MEMANTINE. [Suspect]
     Active Substance: MEMANTINE
     Indication: PRODUCT USED FOR UNKNOWN INDICATION
     Dosage: UNK
     Route: 065
  5. GARDENAL//PHENOBARBITAL [Concomitant]
     Active Substance: PHENOBARBITAL
     Indication: PRODUCT USED FOR UNKNOWN INDICATION
     Route: 065
  6. EXELON [Suspect]
     Active Substance: RIVASTIGMINE TARTRATE
     Indication: PRODUCT USED FOR UNKNOWN INDICATION
     Dosage: UNK, (STOPPED 15 DAYS AGO)
     Route: 065
  7. NEOTIAPIM [Suspect]
     Active Substance: QUETIAPINE
     Indication: ANXIETY
     Dosage: 25 MG, TID (IN THE MORNING, IN THE AFTERNOON AND AT NIGHT)
     Route: 048
     Dates: start: 201510

REACTIONS (7)
  - Agitation [Unknown]
  - Dementia Alzheimer^s type [Recovering/Resolving]
  - Aggression [Recovering/Resolving]
  - Logorrhoea [Unknown]
  - Nervousness [Unknown]
  - Memory impairment [Recovering/Resolving]
  - Weight decreased [Unknown]
